FAERS Safety Report 6662202-3 (Version None)
Quarter: 2010Q1

REPORT INFORMATION
  Report Type: 
  Country: None (occurrence: None)
  Receive Date: 20100329
  Receipt Date: 20100317
  Transmission Date: 20100710
  Serious: Yes (Other)
  Sender: FDA-Public Use
  Company Number: 539405

PATIENT
  Age: 18 Year
  Sex: Female

DRUGS (7)
  1. FENTANYL CITRATE [Suspect]
     Indication: SEDATIVE THERAPY
     Dosage: UP TO UG/KG/HR, 50 MCG, 150 UG/HR, INTRAVENOUS DIP, INTRAVENOUS BOLUS, INTRAVENOUS DRIP
     Route: 042
  2. PRECEDEX [Suspect]
     Indication: SEDATIVE THERAPY
     Dosage: UP TO 4 UG/KG/HR, INTRAVENOUS, 50 MCG INTRAVENOUS BOLUS, 150 UG/HR INTRAVENOUS DRIP
     Route: 042
  3. PROPOFOL [Suspect]
     Indication: SEDATIVE THERAPY
     Dosage: 0.5-2.5 MG/KG/HR, INTRAVENOUS DRIP, 20-30 MG INTRAVENOUS BOLUS
     Route: 042
  4. LORAZEPAM [Concomitant]
  5. CISTRACURIUM [Concomitant]
  6. NORADRENALINE TARTRATE [Concomitant]
  7. VASOPRESSIN [Concomitant]

REACTIONS (13)
  - ACUTE LUNG INJURY [None]
  - ACUTE RESPIRATORY DISTRESS SYNDROME [None]
  - AGITATION [None]
  - BRADYCARDIA [None]
  - CARDIAC ARREST [None]
  - COUGH [None]
  - DILATATION VENTRICULAR [None]
  - DRUG INTERACTION [None]
  - LUNG INFECTION PSEUDOMONAL [None]
  - PULMONARY HYPERTENSION [None]
  - RENAL FAILURE ACUTE [None]
  - SINUS ARRHYTHMIA [None]
  - VOMITING [None]
